FAERS Safety Report 16935516 (Version 1)
Quarter: 2019Q4

REPORT INFORMATION
  Report Type: Spontaneous
  Country: US (occurrence: US)
  Receive Date: 20191018
  Receipt Date: 20191018
  Transmission Date: 20200122
  Serious: No
  Sender: FDA-Public Use
  Company Number: US-SA-2019SA287960

PATIENT
  Age: 66 Year
  Sex: Male
  Weight: 95.2 kg

DRUGS (1)
  1. LOVENOX [Suspect]
     Active Substance: ENOXAPARIN SODIUM
     Indication: PULMONARY EMBOLISM
     Dosage: 0.9 ML, Q12H
     Route: 065

REACTIONS (1)
  - Epistaxis [Recovered/Resolved]
